FAERS Safety Report 5112694-6 (Version None)
Quarter: 2006Q3

REPORT INFORMATION
  Report Type: 
  Country: None (occurrence: None)
  Receive Date: 20060922
  Receipt Date: 20050915
  Transmission Date: 20061208
  Serious: Yes (Hospitalization)
  Sender: FDA-Public Use
  Company Number: SE-GLAXOSMITHKLINE-B0394690A

PATIENT
  Age: 70 Year
  Sex: Male

DRUGS (7)
  1. ZOVIRAX [Suspect]
     Indication: HERPES ZOSTER
     Dosage: 1.6G PER DAY
     Route: 048
     Dates: start: 19950711, end: 19950720
  2. ALVEDON [Concomitant]
  3. FERRUM HAUSMANN [Concomitant]
  4. FOLACIN [Concomitant]
  5. CALCIUM CARBONATE [Concomitant]
  6. ORALOVITE [Concomitant]
  7. RECORMON [Concomitant]

REACTIONS (10)
  - ASTHENIA [None]
  - BALANCE DISORDER [None]
  - BLOOD PRESSURE INCREASED [None]
  - CONFUSIONAL STATE [None]
  - DEPRESSED LEVEL OF CONSCIOUSNESS [None]
  - DYSPNOEA [None]
  - FATIGUE [None]
  - GOUT [None]
  - HEADACHE [None]
  - VOMITING [None]
